FAERS Safety Report 9707794 (Version 2)
Quarter: 2014Q1

REPORT INFORMATION
  Report Type: Report from Study
  Country: CN (occurrence: CN)
  Receive Date: 20131125
  Receipt Date: 20140130
  Transmission Date: 20141002
  Serious: Yes (Death, Hospitalization)
  Sender: FDA-Public Use
  Company Number: CN-ASTELLAS-2013US012357

PATIENT
  Age: 64 Year
  Sex: Male

DRUGS (1)
  1. ERLOTINIB TABLET [Suspect]
     Indication: NON-SMALL CELL LUNG CANCER
     Dosage: 150 MG, UID/QD
     Route: 048
     Dates: start: 20130314

REACTIONS (3)
  - Neoplasm [Fatal]
  - Platelet count decreased [Not Recovered/Not Resolved]
  - Pyrexia [Not Recovered/Not Resolved]
